FAERS Safety Report 18627226 (Version 2)
Quarter: 2021Q2

REPORT INFORMATION
  Report Type: Spontaneous
  Country: US (occurrence: US)
  Receive Date: 20201217
  Receipt Date: 20210401
  Transmission Date: 20210717
  Serious: No
  Sender: FDA-Public Use
  Company Number: US-DRREDDYS-USA/USA/20/0129928

PATIENT
  Age: 60 Year
  Sex: Female

DRUGS (5)
  1. PETROLEUM JELLY [Concomitant]
     Active Substance: PETROLATUM
     Indication: FROSTBITE
  2. MUPIROCIN. [Concomitant]
     Active Substance: MUPIROCIN
     Indication: FROSTBITE
  3. CYCLOPHOSPHAMIDE. [Suspect]
     Active Substance: CYCLOPHOSPHAMIDE
     Indication: BREAST CANCER STAGE I
     Dosage: INFUSION
     Route: 042
  4. DIPHENHYDRAMINE. [Concomitant]
     Active Substance: DIPHENHYDRAMINE
     Indication: FROSTBITE
     Route: 048
  5. DOCETAXEL. [Suspect]
     Active Substance: DOCETAXEL
     Indication: BREAST CANCER STAGE I
     Dosage: INFUSION
     Route: 041

REACTIONS (2)
  - Diffuse alopecia [Recovering/Resolving]
  - Alopecia [Recovering/Resolving]
